FAERS Safety Report 9663768 (Version 1)
Quarter: 2013Q4

REPORT INFORMATION
  Report Type: Spontaneous
  Country: US (occurrence: US)
  Receive Date: 20131101
  Receipt Date: 20131101
  Transmission Date: 20140711
  Serious: No
  Sender: FDA-Public Use
  Company Number: US-BAYER-2013-133257

PATIENT
  Age: 50 Year
  Sex: Male
  Weight: 75 kg

DRUGS (1)
  1. ALEVE CAPLET [Suspect]
     Indication: GOUTY ARTHRITIS
     Dosage: 1-2 DF,PRN
     Route: 048

REACTIONS (3)
  - Joint injury [None]
  - Incorrect drug administration duration [None]
  - Extra dose administered [None]
